FAERS Safety Report 7238505-0 (Version None)
Quarter: 2011Q1

REPORT INFORMATION
  Report Type: 
  Country: None (occurrence: None)
  Receive Date: 20110119
  Receipt Date: 20110119
  Transmission Date: 20110831
  Serious: Yes (Hospitalization)
  Sender: FDA-Public Use
  Company Number: None

PATIENT
  Age: 80 Year
  Sex: Male
  Weight: 91.8 kg

DRUGS (2)
  1. REVLIMID [Suspect]
     Indication: PROSTATE CANCER METASTATIC
     Dosage: 10MG 1-21 OF 28 PO
     Route: 048
     Dates: start: 20101216, end: 20101229
  2. FOSINOPRIL 10MG PO QD [Suspect]
     Indication: HYPERTENSION
     Dosage: 10MG QD PO
     Route: 048
     Dates: end: 20101229

REACTIONS (2)
  - PRESYNCOPE [None]
  - RECTAL TENESMUS [None]
